FAERS Safety Report 19682550 (Version 2)
Quarter: 2021Q3

REPORT INFORMATION
  Report Type: Report from Study
  Country: ES (occurrence: ES)
  Receive Date: 20210810
  Receipt Date: 20210910
  Transmission Date: 20211014
  Serious: Yes (Death, Hospitalization)
  Sender: FDA-Public Use
  Company Number: ES-TAKEDA-ES201504799

PATIENT
  Age: 8 Year
  Sex: Male

DRUGS (1)
  1. IDURSULFASE [Suspect]
     Active Substance: IDURSULFASE
     Indication: MUCOPOLYSACCHARIDOSIS II
     Dosage: 0.5 MG/KG, 1X/WEEK
     Route: 041
     Dates: start: 20090402

REACTIONS (4)
  - Insomnia [Recovering/Resolving]
  - Agitation [Fatal]
  - Disease progression [Fatal]
  - Aggression [Fatal]

NARRATIVE: CASE EVENT DATE: 20150226
